FAERS Safety Report 10715838 (Version 1)
Quarter: 2015Q1

REPORT INFORMATION
  Report Type: Spontaneous
  Country: US (occurrence: None)
  Receive Date: 20150109
  Receipt Date: 20150109
  Transmission Date: 20150721
  Serious: Yes (Hospitalization, Other)
  Sender: FDA-Public Use
  Company Number: 2014SIPUSA00677

PATIENT
  Age: 68 Year
  Sex: Male
  Weight: 80.9 kg

DRUGS (13)
  1. LOSARTAN [Concomitant]
     Active Substance: LOSARTAN
  2. ZOMETA (SOLEDRONIC ACID) [Concomitant]
  3. SENNA [Concomitant]
     Active Substance: SENNA LEAF\SENNOSIDES\SENNOSIDES A AND B
  4. SIPULEUCEL-T (SIPULEUCEL-T) SUSPENSION [Suspect]
     Active Substance: SIPULEUCEL-T
     Indication: PROSTATE CANCER METASTATIC
     Route: 042
     Dates: start: 20140310, end: 20140310
  5. ALPRAZOLAM. [Concomitant]
     Active Substance: ALPRAZOLAM
  6. IBUPROFEN. [Concomitant]
     Active Substance: IBUPROFEN
  7. PROTONIX (PANTOPRAZOLE SODIUM SESQUIHYDRATE)? [Concomitant]
  8. LUPRON (LEUPRORELIN ACETATE) [Concomitant]
  9. SERTRALINE HCL (SERTARALINE HYDROCHLORIDE0 [Concomitant]
  10. CYCLOBENZAPRINE HCL (CYCLOBENZAPRINE HYDROCHLORIDE) [Concomitant]
  11. CELEBREX [Concomitant]
     Active Substance: CELECOXIB
  12. MORPHINE [Concomitant]
     Active Substance: MORPHINE
  13. ACYCLOVIR. [Concomitant]
     Active Substance: ACYCLOVIR

REACTIONS (2)
  - Anaemia [None]
  - Arthralgia [None]

NARRATIVE: CASE EVENT DATE: 20140303
